FAERS Safety Report 7380533-9 (Version None)
Quarter: 2011Q1

REPORT INFORMATION
  Report Type: 
  Country: None (occurrence: None)
  Receive Date: 20110329
  Receipt Date: 20110322
  Transmission Date: 20110831
  Serious: Yes (Death)
  Sender: FDA-Public Use
  Company Number: JP-GENZYME-CERZ-1001979

PATIENT
  Sex: Male

DRUGS (2)
  1. CEREZYME [Suspect]
     Dosage: 15 U/KG, Q4W
     Route: 042
     Dates: start: 20090801
  2. CEREZYME [Suspect]
     Indication: GAUCHER'S DISEASE
     Dosage: 60 U/KG, Q2W
     Route: 042
     Dates: end: 20090801

REACTIONS (1)
  - DEATH [None]
